FAERS Safety Report 5161691-3 (Version None)
Quarter: 2006Q4

REPORT INFORMATION
  Report Type: 
  Country: None (occurrence: None)
  Receive Date: 20061130
  Receipt Date: 20060724
  Transmission Date: 20070319
  Serious: No
  Sender: FDA-Public Use
  Company Number: US-BRISTOL-MYERS SQUIBB COMPANY-13453444

PATIENT
  Age: 75 Year
  Sex: Female

DRUGS (1)
  1. METFORMIN HCL [Suspect]
     Dates: start: 20060201

REACTIONS (3)
  - DIARRHOEA [None]
  - DYSGEUSIA [None]
  - STOMACH DISCOMFORT [None]
